FAERS Safety Report 21589262 (Version 1)
Quarter: 2022Q4

REPORT INFORMATION
  Report Type: Spontaneous
  Country: DE (occurrence: DE)
  Receive Date: 20221114
  Receipt Date: 20221114
  Transmission Date: 20230113
  Serious: Yes (Death, Life-Threatening)
  Sender: FDA-Public Use
  Company Number: DE-drreddys-LIT/GER/22/0157093

PATIENT
  Age: 57 Year
  Sex: Female

DRUGS (3)
  1. LEVETIRACETAM [Suspect]
     Active Substance: LEVETIRACETAM
     Indication: Posterior reversible encephalopathy syndrome
  2. VALPROATE [Suspect]
     Active Substance: VALPROIC ACID
     Indication: Posterior reversible encephalopathy syndrome
  3. METHYLPREDNISOLONE [Suspect]
     Active Substance: METHYLPREDNISOLONE
     Indication: Encephalitis autoimmune
     Route: 042

REACTIONS (3)
  - Posterior reversible encephalopathy syndrome [Fatal]
  - Condition aggravated [Fatal]
  - Drug ineffective for unapproved indication [Unknown]
